FAERS Safety Report 22088297 (Version 4)
Quarter: 2023Q2

REPORT INFORMATION
  Report Type: Report from Study
  Country: US (occurrence: US)
  Receive Date: 20230313
  Receipt Date: 20230619
  Transmission Date: 20230722
  Serious: Yes (Other)
  Sender: FDA-Public Use
  Company Number: US-TAKEDA-US202005958

PATIENT
  Sex: Female

DRUGS (1)
  1. HUMAN IMMUNOGLOBULIN G [Suspect]
     Active Substance: HUMAN IMMUNOGLOBULIN G
     Indication: Primary immunodeficiency syndrome
     Dosage: UNK
     Route: 058

REACTIONS (9)
  - Pneumonia [Recovering/Resolving]
  - Illness [Unknown]
  - Abdominal discomfort [Unknown]
  - Fatigue [Unknown]
  - Arthritis [Unknown]
  - Gastrointestinal infection [Unknown]
  - Intestinal barrier dysfunction [Unknown]
  - COVID-19 [Unknown]
  - Inappropriate schedule of product administration [Recovered/Resolved]
